FAERS Safety Report 6845856-8 (Version None)
Quarter: 2010Q3

REPORT INFORMATION
  Report Type: 
  Country: None (occurrence: None)
  Receive Date: 20100715
  Receipt Date: 20091126
  Transmission Date: 20110219
  Serious: No
  Sender: FDA-Public Use
  Company Number: US-PFIZER INC-2007071051

PATIENT
  Sex: Female
  Weight: 90.7 kg

DRUGS (5)
  1. CHANTIX [Suspect]
     Dosage: 1 MG, 2X/DAY
     Dates: start: 20060915
  2. CYMBALTA [Concomitant]
  3. LORAZEPAM [Concomitant]
  4. LISINOPRIL [Concomitant]
  5. SINEMET [Concomitant]

REACTIONS (5)
  - AGITATION [None]
  - DRUG DEPENDENCE [None]
  - DRUG EFFECT DECREASED [None]
  - NICOTINE DEPENDENCE [None]
  - TOBACCO WITHDRAWAL SYMPTOMS [None]
